FAERS Safety Report 6520480-5 (Version None)
Quarter: 2009Q4

REPORT INFORMATION
  Report Type: 
  Country: None (occurrence: None)
  Receive Date: 20091229
  Receipt Date: 20091228
  Transmission Date: 20100525
  Serious: Yes (Other)
  Sender: FDA-Public Use
  Company Number: A0836735A

PATIENT
  Age: 64 Year
  Sex: Male

DRUGS (8)
  1. ADVAIR DISKUS 100/50 [Suspect]
     Indication: CHRONIC OBSTRUCTIVE PULMONARY DISEASE
     Dosage: 1PUFF TWICE PER DAY
     Route: 055
     Dates: start: 20071201
  2. PLAVIX [Concomitant]
  3. LIPITOR [Concomitant]
  4. ACCUPRIL [Concomitant]
  5. FLUOXETINE [Concomitant]
  6. BABY ASPIRIN [Concomitant]
  7. ALBUTEROL [Concomitant]
  8. SPIRIVA [Concomitant]

REACTIONS (2)
  - CATARACT [None]
  - LACRIMATION INCREASED [None]
